FAERS Safety Report 20305463 (Version 1)
Quarter: 2022Q1

REPORT INFORMATION
  Report Type: Spontaneous
  Country: US (occurrence: US)
  Receive Date: 20220106
  Receipt Date: 20220106
  Transmission Date: 20220423
  Serious: No
  Sender: FDA-Public Use
  Company Number: US-AMNEAL PHARMACEUTICALS-2021-AMRX-04820

PATIENT
  Age: 42 Year
  Sex: Female
  Weight: 117 kg

DRUGS (15)
  1. ACTIVELLA [Suspect]
     Active Substance: ESTRADIOL\NORETHINDRONE ACETATE
     Indication: Uterine leiomyoma
     Dosage: 1 DOSAGE FORM, 1X/DAY
     Route: 048
     Dates: start: 20180430, end: 20190402
  2. ACTIVELLA [Suspect]
     Active Substance: ESTRADIOL\NORETHINDRONE ACETATE
     Dosage: 1 DOSAGE FORM, 1X/DAY
     Route: 048
     Dates: start: 20190403, end: 20210924
  3. ELAGOLIX [Suspect]
     Active Substance: ELAGOLIX
     Indication: Uterine leiomyoma
     Dosage: 300 MILLIGRAM, DAILY
     Route: 048
     Dates: start: 20180430, end: 20190402
  4. ELAGOLIX [Suspect]
     Active Substance: ELAGOLIX
     Dosage: 300 MILLIGRAM, DAILY
     Route: 048
     Dates: start: 20190403, end: 20210924
  5. LIPITOR [Interacting]
     Active Substance: ATORVASTATIN CALCIUM
     Indication: Cerebrovascular accident prophylaxis
     Dosage: 10 MILLIGRAM, 1X/DAY
     Route: 048
  6. LIPITOR [Interacting]
     Active Substance: ATORVASTATIN CALCIUM
     Indication: Ischaemic heart disease prophylaxis
  7. LOSARTAN [Concomitant]
     Active Substance: LOSARTAN
     Indication: Renal impairment
     Dosage: 50 MILLIGRAM, 1X/DAY
     Route: 048
  8. GABAPENTIN [Concomitant]
     Active Substance: GABAPENTIN
     Indication: Pain in extremity
     Dosage: 900 MILLIGRAM, 3X/DAY
     Route: 048
     Dates: start: 201501
  9. VENLAFAXINE [Concomitant]
     Active Substance: VENLAFAXINE HYDROCHLORIDE
     Indication: Pain in extremity
     Dosage: 150 MILLIGRAM, 1X/DAY
     Route: 048
     Dates: start: 201601
  10. ZYRTEC [Concomitant]
     Active Substance: CETIRIZINE HYDROCHLORIDE
     Indication: Seasonal allergy
     Dosage: 10 MILLIGRAM, 1X/DAY
     Route: 048
     Dates: start: 20171218
  11. FERROUS SULFATE [Concomitant]
     Active Substance: FERROUS SULFATE
     Indication: Anaemia
     Dosage: 325 MILLIGRAM, 3X/DAY
     Route: 048
     Dates: start: 20180309
  12. CHOLECALCIFEROL [Concomitant]
     Active Substance: CHOLECALCIFEROL
     Indication: Vitamin supplementation
     Dosage: 1000 INTERNATIONAL UNIT/KILOGRAM, 1X/DAY
     Route: 048
     Dates: start: 20180508
  13. NOVOLIN N [Concomitant]
     Active Substance: INSULIN HUMAN
     Indication: Type 2 diabetes mellitus
     Dosage: 2 MILLILITER, 2X/DAY
     Route: 058
     Dates: start: 20181025
  14. ALLOPURINOL [Concomitant]
     Active Substance: ALLOPURINOL
     Indication: Neuralgia
     Dosage: 100 MILLIGRAM, 1X/DAY
     Route: 048
     Dates: start: 20190924
  15. INSULIN BEEF [Concomitant]
     Active Substance: INSULIN BEEF
     Indication: Type 2 diabetes mellitus
     Dosage: 100 MILLILITER, AS NEEDED
     Route: 058
     Dates: start: 20191004

REACTIONS (1)
  - Bone density decreased [Not Recovered/Not Resolved]

NARRATIVE: CASE EVENT DATE: 20210521
